FAERS Safety Report 26045681 (Version 1)
Quarter: 2025Q4

REPORT INFORMATION
  Report Type: Spontaneous
  Country: US (occurrence: US)
  Receive Date: 20251114
  Receipt Date: 20251114
  Transmission Date: 20260117
  Serious: No
  Sender: MICRO LABS LIMITED
  Company Number: US-MICRO LABS LIMITED-ML2025-05833

PATIENT
  Age: 63 Year
  Sex: Female
  Weight: 76 kg

DRUGS (4)
  1. DALFAMPRIDINE [Suspect]
     Active Substance: DALFAMPRIDINE
     Indication: Multiple sclerosis
  2. GABAPENTIN [Concomitant]
     Active Substance: GABAPENTIN
     Indication: Product used for unknown indication
  3. LEVOTHYROXINE [Concomitant]
     Active Substance: LEVOTHYROXINE
     Indication: Thyroid disorder
  4. CETIRIZINE [Concomitant]
     Active Substance: CETIRIZINE HYDROCHLORIDE
     Indication: Hypersensitivity

REACTIONS (4)
  - Dizziness [Unknown]
  - Asthenia [Unknown]
  - Intentional dose omission [Unknown]
  - Increased dose administered [Unknown]

NARRATIVE: CASE EVENT DATE: 20251103
